FAERS Safety Report 6312671 (Version 2)
Quarter: 2013Q1

REPORT INFORMATION
  Report Type: Spontaneous
  Country: US (occurrence: US)
  Receive Date: 20070515
  Receipt Date: 20130222
  Transmission Date: 20140127
  Serious: Yes (Other)
  Sender: FDA-Public Use
  Company Number: US-RB-3739-2006

PATIENT
  Age: 28 Year
  Sex: Female
  Weight: 72 kg

DRUGS (12)
  1. SUBOXONE [Suspect]
     Indication: DRUG DEPENDENCE
     Route: 060
     Dates: start: 200412, end: 200502
  2. SUBOXONE [Suspect]
     Route: 060
     Dates: start: 20050118, end: 20050227
  3. SUBUTEX [Suspect]
     Dosage: DOSING DETAILS UNKNOWN
     Route: 060
     Dates: start: 20050228, end: 20060706
  4. SUBUTEX [Suspect]
     Dosage: TAPERED OFF IN 1ST TRIMESTER
     Route: 060
     Dates: start: 20060707, end: 2006
  5. SUBUTEX [Suspect]
     Indication: DRUG DEPENDENCE
     Route: 060
     Dates: start: 20061106, end: 200701
  6. SUBUTEX [Suspect]
     Dosage: COMPOUNDED IN HOSPITAL PHAMACY BY USING CRUSHED SUBUTEX PATIENT ON 0.1MG/WEEK REDUCTION REGIME
     Route: 060
     Dates: start: 20060711, end: 2006
  7. INDERAL LA [Concomitant]
     Indication: MIGRAINE
     Dosage: 120 MG; TAPERED OFF PRIOR TO PREGNANCY
     Route: 048
     Dates: start: 20050114, end: 2006
  8. PREGNANCY MULTIVITAMINS [Concomitant]
     Indication: PRENATAL CARE
     Dosage: DOSING DETAILS UNKNOWN
     Route: 065
  9. ALBUTEROL [Concomitant]
     Indication: ASTHMA
     Dosage: DRUG DETAILS UNKNOWN
     Route: 065
  10. BIRTH CONTROL TABLETS [Concomitant]
     Indication: CONTRACEPTION
     Dosage: DOSING DETAILS UNKNOWN
     Route: 048
     Dates: end: 200607
  11. ORTHO CYCLEN [Concomitant]
     Indication: PRODUCT USED FOR UNKNOWN INDICATION
     Route: 065
     Dates: start: 2005, end: 2006
  12. RELPAX [Concomitant]
     Indication: PRODUCT USED FOR UNKNOWN INDICATION
     Dosage: DOSING DETAILS UNKNOWN- TAPERED OFF PRIOR TO PREGNANCY
     Route: 065
     Dates: end: 2006

REACTIONS (6)
  - Exposure during pregnancy [Recovered/Resolved]
  - Drug withdrawal syndrome [Recovered/Resolved]
  - Turner^s syndrome [Recovered/Resolved]
  - Nausea [Recovered/Resolved]
  - Polyhydramnios [Recovered/Resolved]
  - Abortion induced [Recovered/Resolved]
